FAERS Safety Report 9208164 (Version 3)
Quarter: 2013Q2

REPORT INFORMATION
  Report Type: Spontaneous
  Country: US (occurrence: US)
  Receive Date: 20130403
  Receipt Date: 20130605
  Transmission Date: 20140414
  Serious: Yes (Other)
  Sender: FDA-Public Use
  Company Number: US-BAYER-2013-042594

PATIENT
  Age: 86 Year
  Sex: Male
  Weight: 74.84 kg

DRUGS (6)
  1. XARELTO [Suspect]
     Indication: THROMBOSIS
     Dosage: 20 MG, QD
     Route: 048
     Dates: start: 20130225, end: 20130327
  2. XARELTO [Suspect]
     Indication: DEEP VEIN THROMBOSIS
  3. XARELTO [Suspect]
     Indication: THROMBOSIS PROPHYLAXIS
  4. BABY ASPIRIN [Suspect]
     Indication: THROMBOSIS
     Route: 048
  5. LEVOTHYROXINE [Concomitant]
     Indication: THYROID DISORDER
     Dosage: 112 ?G, QD
     Route: 048
  6. LEVOTHYROXINE [Concomitant]
     Indication: THYROID DISORDER

REACTIONS (5)
  - Blood urine present [Recovered/Resolved]
  - Chromaturia [Recovered/Resolved]
  - Protein urine present [Unknown]
  - Incorrect dose administered [Recovered/Resolved]
  - Wrong technique in drug usage process [Recovered/Resolved]
